FAERS Safety Report 21028417 (Version 1)
Quarter: 2022Q2

REPORT INFORMATION
  Report Type: Spontaneous
  Country: US (occurrence: US)
  Receive Date: 20220630
  Receipt Date: 20220630
  Transmission Date: 20220720
  Serious: No
  Sender: FDA-Public Use
  Company Number: US-SA-SAC20220629001813

PATIENT
  Age: 19 Year
  Sex: Male

DRUGS (4)
  1. DUPIXENT [Suspect]
     Active Substance: DUPILUMAB
     Dosage: UNK
     Route: 065
  2. PREDNISONE [Concomitant]
     Active Substance: PREDNISONE
  3. EUCRISA [Concomitant]
     Active Substance: CRISABOROLE
  4. IBUPROFEN [Concomitant]
     Active Substance: IBUPROFEN

REACTIONS (3)
  - Product dose omission issue [Unknown]
  - Product distribution issue [Unknown]
  - Product storage error [Unknown]
